FAERS Safety Report 4964361-7 (Version None)
Quarter: 2006Q1

REPORT INFORMATION
  Report Type: 
  Country: None (occurrence: None)
  Receive Date: 20060331
  Receipt Date: 20060315
  Transmission Date: 20060701
  Serious: No
  Sender: FDA-Public Use
  Company Number: US200603004129

PATIENT
  Sex: Female

DRUGS (1)
  1. CYMBALTA [Suspect]
     Dosage: UNK

REACTIONS (1)
  - LIVER FUNCTION TEST ABNORMAL [None]
